FAERS Safety Report 17237143 (Version 1)
Quarter: 2019Q4

REPORT INFORMATION
  Report Type: Spontaneous
  Country: US (occurrence: US)
  Receive Date: 20191211
  Receipt Date: 20191211
  Transmission Date: 20200122
  Serious: No
  Sender: FDA-Public Use
  Company Number: None

PATIENT
  Sex: Male

DRUGS (1)
  1. OCTREOTIDE 1ML SDV 50MCG/ML  TEVA PARENTERAL MEDICINES [Suspect]
     Active Substance: OCTREOTIDE
     Indication: HYPOGLYCAEMIA
     Route: 058
     Dates: start: 20191029

REACTIONS (3)
  - Hypotension [None]
  - Heart rate decreased [None]
  - Dizziness [None]
